FAERS Safety Report 9160258 (Version 3)
Quarter: 2013Q3

REPORT INFORMATION
  Report Type: Spontaneous
  Country: GR (occurrence: GR)
  Receive Date: 20130313
  Receipt Date: 20130823
  Transmission Date: 20140515
  Serious: Yes (Other)
  Sender: FDA-Public Use
  Company Number: GR-SANOFI-AVENTIS-2013SA021477

PATIENT
  Age: 45 Year
  Sex: Male

DRUGS (5)
  1. CISPLATIN [Suspect]
     Indication: LUNG ADENOCARCINOMA STAGE IV
     Route: 065
  2. TAXOTERE [Suspect]
     Indication: LUNG ADENOCARCINOMA STAGE IV
     Dosage: CYCLE (1-6)
     Route: 065
  3. TAXOTERE [Suspect]
     Indication: LUNG ADENOCARCINOMA STAGE IV
     Route: 065
  4. TAXOTERE [Suspect]
     Indication: LUNG ADENOCARCINOMA STAGE IV
     Route: 065
  5. ALIMTA [Concomitant]
     Indication: LUNG ADENOCARCINOMA STAGE IV

REACTIONS (13)
  - Adrenal mass [Unknown]
  - Disease progression [Unknown]
  - Lymphadenopathy [Unknown]
  - Weight decreased [Unknown]
  - Alopecia [Unknown]
  - Nail growth abnormal [Unknown]
  - Fatigue [Unknown]
  - Hypoaesthesia [Unknown]
  - Hypoaesthesia [Unknown]
  - White blood cell count decreased [Unknown]
  - Pyrexia [Unknown]
  - Drug ineffective [Unknown]
  - Off label use [Unknown]
